FAERS Safety Report 8994681 (Version 1)
Quarter: 2012Q4

REPORT INFORMATION
  Report Type: Spontaneous
  Country: US (occurrence: None)
  Receive Date: 20121228
  Receipt Date: 20121228
  Transmission Date: 20130627
  Serious: No
  Sender: FDA-Public Use
  Company Number: None

PATIENT
  Age: 31 Year
  Sex: Female
  Weight: 64.41 kg

DRUGS (1)
  1. BUPROPION HCL XL [Suspect]
     Indication: DEPRESSION
     Route: 048
     Dates: start: 20120407, end: 20121224

REACTIONS (1)
  - Alopecia [None]
